FAERS Safety Report 6854176-7 (Version None)
Quarter: 2010Q3

REPORT INFORMATION
  Report Type: 
  Country: None (occurrence: None)
  Receive Date: 20100717
  Receipt Date: 20080129
  Transmission Date: 20110219
  Serious: No
  Sender: FDA-Public Use
  Company Number: US-PFIZER INC-2007108978

PATIENT
  Sex: Female

DRUGS (6)
  1. CHANTIX [Suspect]
     Indication: SMOKING CESSATION THERAPY
     Dates: start: 20070701
  2. ALBUTEROL [Concomitant]
  3. MONTELUKAST SODIUM [Concomitant]
  4. ADVAIR DISKUS 100/50 [Concomitant]
  5. PRILOSEC [Concomitant]
  6. ZANTAC [Concomitant]

REACTIONS (1)
  - DRUG INEFFECTIVE [None]
